FAERS Safety Report 6114664-8 (Version None)
Quarter: 2009Q1

REPORT INFORMATION
  Report Type: 
  Country: None (occurrence: None)
  Receive Date: 20090313
  Receipt Date: 20090305
  Transmission Date: 20090719
  Serious: Yes (Hospitalization)
  Sender: FDA-Public Use
  Company Number: US-BIOGENIDEC-2009BI007021

PATIENT
  Age: 33 Year
  Sex: Female

DRUGS (3)
  1. AVONEX [Suspect]
     Indication: MULTIPLE SCLEROSIS
     Route: 030
     Dates: start: 19950119, end: 19960101
  2. AVONEX [Suspect]
     Route: 030
     Dates: end: 20080101
  3. AVONEX [Suspect]
     Route: 030
     Dates: start: 20090304

REACTIONS (1)
  - CEREBROVASCULAR ACCIDENT [None]
